FAERS Safety Report 23258496 (Version 4)
Quarter: 2024Q1

REPORT INFORMATION
  Report Type: Spontaneous
  Country: CH (occurrence: CH)
  Receive Date: 20231204
  Receipt Date: 20240303
  Transmission Date: 20240409
  Serious: Yes (Hospitalization)
  Sender: FDA-Public Use
  Company Number: CH-JNJFOC-20231172221

PATIENT
  Age: 51 Year
  Weight: 95 kg

DRUGS (8)
  1. STELARA [Suspect]
     Active Substance: USTEKINUMAB
     Indication: Crohn^s disease
     Dosage: 520 MG IN 250 ML NACL 0.9%
     Route: 040
     Dates: start: 2021
  2. STELARA [Suspect]
     Active Substance: USTEKINUMAB
     Route: 058
     Dates: start: 20231114
  3. STELARA [Suspect]
     Active Substance: USTEKINUMAB
     Route: 058
  4. VIT D [VITAMIN D NOS] [Concomitant]
     Indication: Crohn^s disease
  5. XARELTO [Concomitant]
     Active Substance: RIVAROXABAN
     Indication: Deep vein thrombosis
     Dates: start: 202310
  6. XARELTO [Concomitant]
     Active Substance: RIVAROXABAN
     Indication: Thrombosis
  7. DIAMOX SEQUELS [Concomitant]
     Active Substance: ACETAZOLAMIDE
     Indication: Papilloedema
     Dates: start: 202310
  8. COVID-19 VACCINE [Concomitant]
     Dates: start: 20211114

REACTIONS (3)
  - Adverse event [Unknown]
  - Chest pain [Unknown]
  - Off label use [Unknown]

NARRATIVE: CASE EVENT DATE: 20231101
